FAERS Safety Report 8962874 (Version 3)
Quarter: 2013Q4

REPORT INFORMATION
  Report Type: Report from Study
  Country: PL (occurrence: PL)
  Receive Date: 20121213
  Receipt Date: 20131112
  Transmission Date: 20140711
  Serious: Yes (Life-Threatening, Other)
  Sender: FDA-Public Use
  Company Number: PL-ROCHE-1162722

PATIENT
  Age: 54 Year
  Sex: Female
  Weight: 71 kg

DRUGS (10)
  1. HERCEPTIN [Suspect]
     Indication: BREAST CANCER
     Route: 042
     Dates: start: 20051005, end: 20100616
  2. HERCEPTIN [Suspect]
     Route: 042
  3. XELODA [Suspect]
     Indication: PRODUCT USED FOR UNKNOWN INDICATION
     Route: 065
  4. NAVELBINE [Suspect]
     Indication: BREAST CANCER
     Route: 042
     Dates: start: 20051005, end: 200710
  5. 5-FLUOROURACIL [Concomitant]
  6. DOXORUBICIN HCL [Concomitant]
  7. CYCLOPHOSPHAMIDE [Concomitant]
  8. NEUPOGEN [Concomitant]
     Dosage: 6 AMPOULES OF 48 MILLION UNITS
     Route: 065
  9. LAPATINIB [Concomitant]
  10. DEXAMETHASONE [Concomitant]

REACTIONS (11)
  - Anaemia [Recovered/Resolved]
  - Fracture displacement [Unknown]
  - Leukopenia [Recovered/Resolved]
  - Ejection fraction decreased [Not Recovered/Not Resolved]
  - Ventricular hypokinesia [Unknown]
  - Mitral valve incompetence [Unknown]
  - Epilepsy [Unknown]
  - Metastases to central nervous system [Unknown]
  - Transaminases increased [Unknown]
  - Pyrexia [Unknown]
  - Ocular icterus [Unknown]
